FAERS Safety Report 8465844-8 (Version None)
Quarter: 2012Q2

REPORT INFORMATION
  Report Type: 
  Country: None (occurrence: None)
  Receive Date: 20120619
  Receipt Date: 20120604
  Transmission Date: 20120825
  Serious: Yes (Hospitalization)
  Sender: FDA-Public Use
  Company Number: TPA2012A02855

PATIENT
  Age: 87 Year
  Sex: Male

DRUGS (6)
  1. ADENURIC (FEBUXOSTAT) [Suspect]
     Indication: GOUT
     Dosage: 80 TO 40 MG (1 IN 1 D), ORAL
     Route: 048
     Dates: start: 20110416, end: 20120420
  2. MARCUMAR [Concomitant]
  3. ISOPTIN [Concomitant]
  4. TORSEMIDE [Concomitant]
  5. LOSARTAN POTASSIUM [Concomitant]
  6. DIGOXIN [Concomitant]

REACTIONS (2)
  - CHILLS [None]
  - RASH GENERALISED [None]
